FAERS Safety Report 18291924 (Version 1)
Quarter: 2020Q3

REPORT INFORMATION
  Report Type: Other
  Country: TR (occurrence: TR)
  Receive Date: 20200921
  Receipt Date: 20200921
  Transmission Date: 20201103
  Serious: Yes (Disabling, Other)
  Sender: FDA-Public Use
  Company Number: TR-DEXPHARM-20200837

PATIENT
  Age: 75 Year
  Sex: Male

DRUGS (5)
  1. DICLOFENAC SODIUM NON DEXCEL PRODUCT [Suspect]
     Active Substance: DICLOFENAC SODIUM
     Indication: TOOTHACHE
  2. OXYCODONE [Concomitant]
     Active Substance: OXYCODONE
  3. METHYLPREDNISOLONE. [Concomitant]
     Active Substance: METHYLPREDNISOLONE
  4. GABAPENTIN. [Concomitant]
     Active Substance: GABAPENTIN
  5. LIDOCAINE 2% [Concomitant]
     Active Substance: LIDOCAINE

REACTIONS (1)
  - Mononeuropathy [Recovered/Resolved with Sequelae]
